FAERS Safety Report 8155725-1 (Version None)
Quarter: 2012Q1

REPORT INFORMATION
  Report Type: 
  Country: None (occurrence: None)
  Receive Date: 20120222
  Receipt Date: 20120210
  Transmission Date: 20120608
  Serious: Yes (Other)
  Sender: FDA-Public Use
  Company Number: US-JNJFOC-20120207109

PATIENT
  Sex: Female
  Weight: 90.72 kg

DRUGS (20)
  1. FOLIC ACID [Concomitant]
     Indication: BONE DISORDER
     Route: 048
     Dates: start: 20111001
  2. ALLOPURINOL [Concomitant]
     Indication: GOUT
     Route: 048
     Dates: start: 20080101
  3. METOPROLOL TARTRATE [Concomitant]
     Indication: BLOOD PRESSURE
     Route: 048
     Dates: start: 20080101
  4. POTASSIUM CHLORIDE [Concomitant]
     Indication: BLOOD POTASSIUM DECREASED
     Route: 048
     Dates: start: 20080101
  5. ENBREL [Concomitant]
     Indication: RHEUMATOID ARTHRITIS
     Route: 058
     Dates: start: 20080101, end: 20080101
  6. CHLORTHALIDONE [Concomitant]
     Indication: BLOOD PRESSURE
     Route: 048
     Dates: start: 20111001
  7. ACTONEL [Concomitant]
     Indication: OSTEOPOROSIS PROPHYLAXIS
     Route: 030
     Dates: start: 20110901
  8. REMICADE [Suspect]
     Indication: RHEUMATOID ARTHRITIS
     Dosage: EVERY 4-6 WEEKS
     Route: 042
     Dates: start: 20111115
  9. LIPITOR [Concomitant]
     Indication: BLOOD CHOLESTEROL
     Route: 048
     Dates: start: 20020101
  10. VITAMIN B-12 [Concomitant]
     Indication: VITAMIN B12 DEFICIENCY
     Route: 030
     Dates: start: 20020101
  11. ZETIA [Concomitant]
     Indication: BLOOD CHOLESTEROL
     Route: 048
     Dates: start: 20111017
  12. ASPIRIN [Concomitant]
     Indication: ANTICOAGULANT THERAPY
     Route: 048
     Dates: start: 20080101
  13. VITAMIN D [Concomitant]
     Indication: BONE DISORDER
     Route: 048
     Dates: start: 20111001
  14. HUMIRA [Concomitant]
     Indication: RHEUMATOID ARTHRITIS
     Route: 058
     Dates: start: 20080101, end: 20080101
  15. SYNTHROID [Concomitant]
     Indication: THYROID DISORDER
     Route: 048
     Dates: start: 19800101
  16. NYSTATIN [Concomitant]
     Indication: FUNGAL INFECTION
     Route: 048
     Dates: start: 20111001
  17. CRESTOR [Concomitant]
     Indication: BLOOD CHOLESTEROL
     Route: 048
     Dates: start: 20090101
  18. DEXILANT [Concomitant]
     Indication: GASTRIC DISORDER
     Route: 048
     Dates: start: 20100101
  19. METAMUCIL-2 [Concomitant]
     Route: 048
     Dates: start: 20080101
  20. LIPOFLAVONOID [Concomitant]
     Indication: TINNITUS
     Route: 048
     Dates: start: 20110901

REACTIONS (5)
  - DIARRHOEA [None]
  - DRUG EFFECT DECREASED [None]
  - RHEUMATOID ARTHRITIS [None]
  - HERPES ZOSTER [None]
  - GOUT [None]
